FAERS Safety Report 7220759-8 (Version None)
Quarter: 2011Q1

REPORT INFORMATION
  Report Type: 
  Country: None (occurrence: None)
  Receive Date: 20110111
  Receipt Date: 20101229
  Transmission Date: 20110831
  Serious: Yes (Other)
  Sender: FDA-Public Use
  Company Number: CA-AMGEN-CANSP2010005676

PATIENT

DRUGS (5)
  1. NEXUM [Concomitant]
     Dosage: UNK
  2. METOPROLOL TARTRATE [Concomitant]
     Indication: EXTRASYSTOLES
     Dosage: UNK
  3. ENBREL [Suspect]
     Indication: PSORIATIC ARTHROPATHY
     Dosage: 50 MG, QWK
     Dates: start: 20100927
  4. CELEBREX [Concomitant]
     Dosage: UNK
  5. METOPROLOL TARTRATE [Concomitant]
     Indication: PALPITATIONS

REACTIONS (7)
  - PALPITATIONS [None]
  - APHONIA [None]
  - PARAESTHESIA [None]
  - COUGH [None]
  - SINUSITIS [None]
  - MYALGIA [None]
  - EXTRASYSTOLES [None]
